FAERS Safety Report 9062023 (Version 2)
Quarter: 2013Q1

REPORT INFORMATION
  Report Type: Spontaneous
  Country: CA (occurrence: CA)
  Receive Date: 20130204
  Receipt Date: 20130307
  Transmission Date: 20140127
  Serious: Yes (Hospitalization)
  Sender: FDA-Public Use
  Company Number: PHHY2013CA008926

PATIENT
  Age: 44 None
  Sex: Female

DRUGS (2)
  1. EXJADE [Suspect]
     Indication: IRON OVERLOAD
     Dosage: 1500 MG, QD
     Route: 048
     Dates: start: 201001
  2. EXJADE [Suspect]
     Dosage: 1000 UKN, UNK
     Route: 048
     Dates: start: 20130127

REACTIONS (7)
  - Infection [Unknown]
  - Pyrexia [Unknown]
  - Cough [Unknown]
  - Nasopharyngitis [Unknown]
  - Dizziness [Recovering/Resolving]
  - Febrile neutropenia [Unknown]
  - Abdominal discomfort [Unknown]
